FAERS Safety Report 6229846-4 (Version None)
Quarter: 2009Q2

REPORT INFORMATION
  Report Type: 
  Country: None (occurrence: None)
  Receive Date: 20090615
  Receipt Date: 20090608
  Transmission Date: 20091009
  Serious: Yes (Death)
  Sender: FDA-Public Use
  Company Number: FR-PFIZER INC-2009174465

PATIENT
  Age: 72 Year

DRUGS (1)
  1. SUNITINIB MALATE [Suspect]
     Indication: RENAL CANCER METASTATIC

REACTIONS (2)
  - CARDIAC ARREST [None]
  - SHOCK [None]
